FAERS Safety Report 6380917-1 (Version None)
Quarter: 2009Q3

REPORT INFORMATION
  Report Type: 
  Country: None (occurrence: None)
  Receive Date: 20090929
  Receipt Date: 20090923
  Transmission Date: 20100115
  Serious: Yes (Other)
  Sender: FDA-Public Use
  Company Number: B0595361A

PATIENT
  Age: 36 Year
  Sex: Female

DRUGS (1)
  1. SEROXAT [Suspect]
     Indication: MAJOR DEPRESSION
     Dosage: 25MG PER DAY
     Route: 065

REACTIONS (1)
  - SUICIDAL IDEATION [None]
